FAERS Safety Report 13176707 (Version 1)
Quarter: 2017Q1

REPORT INFORMATION
  Report Type: Spontaneous
  Country: FR (occurrence: FR)
  Receive Date: 20170201
  Receipt Date: 20170201
  Transmission Date: 20170428
  Serious: Yes (Other)
  Sender: FDA-Public Use
  Company Number: FR-ELI_LILLY_AND_COMPANY-FR201701009394

PATIENT
  Age: 59 Year
  Sex: Female
  Weight: 53 kg

DRUGS (7)
  1. UVEDOSE [Concomitant]
     Active Substance: CHOLECALCIFEROL
  2. PRAVASTATIN. [Concomitant]
     Active Substance: PRAVASTATIN
  3. PAROXETINE. [Concomitant]
     Active Substance: PAROXETINE
  4. FORSTEO [Suspect]
     Active Substance: TERIPARATIDE
     Indication: OSTEOPOROSIS
     Dosage: 20 UG, QD
     Route: 058
     Dates: start: 201512, end: 201612
  5. CACIT                              /00944201/ [Concomitant]
     Active Substance: CALCIUM CARBONATE\CHOLECALCIFEROL
  6. RAMIPRIL. [Concomitant]
     Active Substance: RAMIPRIL
  7. FUROSEMIDE. [Concomitant]
     Active Substance: FUROSEMIDE

REACTIONS (2)
  - Idiopathic pulmonary fibrosis [Not Recovered/Not Resolved]
  - Interstitial lung disease [Not Recovered/Not Resolved]

NARRATIVE: CASE EVENT DATE: 201603
